FAERS Safety Report 25140037 (Version 1)
Quarter: 2025Q1

REPORT INFORMATION
  Report Type: Spontaneous
  Country: US (occurrence: US)
  Receive Date: 20250331
  Receipt Date: 20250331
  Transmission Date: 20250409
  Serious: Yes (Death, Life-Threatening, Hospitalization)
  Sender: MERCK SHARP & DOHME LLC
  Company Number: US-009507513-2267577

PATIENT
  Sex: Female

DRUGS (3)
  1. KEYTRUDA [Suspect]
     Active Substance: PEMBROLIZUMAB
     Indication: Lung neoplasm malignant
     Dosage: EVERY 3 WEEKS
     Route: 042
     Dates: start: 2023, end: 2024
  2. HYDROCODONE [Concomitant]
     Active Substance: HYDROCODONE
  3. IBUPROFEN [Concomitant]
     Active Substance: IBUPROFEN

REACTIONS (11)
  - COVID-19 [Fatal]
  - Rash [Unknown]
  - Gastrointestinal disorder [Unknown]
  - Vision blurred [Unknown]
  - Hypoacusis [Unknown]
  - Arthritis [Unknown]
  - Muscle tightness [Unknown]
  - Nausea [Unknown]
  - Pruritus [Unknown]
  - Skin exfoliation [Unknown]
  - Bone pain [Unknown]
